FAERS Safety Report 8023786-6 (Version None)
Quarter: 2012Q1

REPORT INFORMATION
  Report Type: 
  Country: None (occurrence: None)
  Receive Date: 20120105
  Receipt Date: 20111222
  Transmission Date: 20120608
  Serious: Yes (Hospitalization, Other)
  Sender: FDA-Public Use
  Company Number: US-RANBAXY-2011RR-51543

PATIENT
  Sex: Female

DRUGS (12)
  1. CIPROFLOXACIN [Suspect]
     Indication: INFECTION
     Dosage: 250 MG, UNK
     Route: 048
     Dates: start: 20040318
  2. CIPROFLOXACIN [Suspect]
     Dosage: UNK
     Route: 065
     Dates: start: 20090809, end: 20090812
  3. LEVAQUIN [Suspect]
     Indication: INFECTION
     Dosage: 750 MG, QD
     Route: 065
     Dates: start: 20001101
  4. PREDNISOLONE [Suspect]
     Indication: INFLAMMATION
     Dosage: 10 MG, UNK
     Route: 048
     Dates: start: 20090818
  5. PREDNISOLONE [Suspect]
     Dosage: 10 MG, UNK
     Route: 048
     Dates: start: 20100831
  6. CIPROFLOXACIN [Suspect]
     Dosage: UNK
     Route: 065
     Dates: start: 20080821
  7. LEVAQUIN [Suspect]
     Dosage: 250 MG, UNK
     Route: 048
     Dates: start: 20030606
  8. CIPROFLOXACIN [Suspect]
     Dosage: 500 MG, UNK
     Route: 048
     Dates: start: 20090420, end: 20090430
  9. LEVAQUIN [Suspect]
     Dosage: 750 MG, QD
     Route: 042
     Dates: start: 20090808
  10. LEVAQUIN [Suspect]
     Indication: CELLULITIS
     Dosage: 750 MG, QD
     Route: 048
     Dates: start: 20090810, end: 20090820
  11. CIPROFLOXACIN [Suspect]
     Dosage: 250 MG, UNK
     Route: 048
     Dates: start: 20040402
  12. PREDNISOLONE [Suspect]
     Indication: SWELLING
     Dosage: 20 MG, UNK
     Route: 048
     Dates: start: 20070710

REACTIONS (2)
  - FEMUR FRACTURE [None]
  - TENDON RUPTURE [None]
